FAERS Safety Report 4300315-1 (Version None)
Quarter: 2004Q1

REPORT INFORMATION
  Report Type: 
  Country: None (occurrence: None)
  Receive Date: 20040220
  Receipt Date: 20040209
  Transmission Date: 20041129
  Serious: Yes (Life-Threatening)
  Sender: FDA-Public Use
  Company Number: WAES 0402USA01050

PATIENT
  Age: 1 Month
  Sex: Male

DRUGS (1)
  1. INDOCIN [Suspect]
     Indication: PATENT DUCTUS ARTERIOSUS
     Route: 042
     Dates: start: 20021022, end: 20021210

REACTIONS (3)
  - GASTROINTESTINAL PERFORATION [None]
  - NEONATAL DISORDER [None]
  - SEPSIS [None]
